FAERS Safety Report 10462119 (Version 3)
Quarter: 2014Q4

REPORT INFORMATION
  Report Type: Spontaneous
  Country: TR (occurrence: TR)
  Receive Date: 20140918
  Receipt Date: 20141113
  Transmission Date: 20150528
  Serious: Yes (Other)
  Sender: FDA-Public Use
  Company Number: TR-PFIZER INC-2014257247

PATIENT
  Age: 29 Year
  Sex: Female
  Weight: 65 kg

DRUGS (2)
  1. MUSCAL [Suspect]
     Active Substance: THIOCOLCHICOSIDE
     Indication: BACK PAIN
     Dosage: 1 DF, UNK
     Dates: start: 20140712, end: 20140712
  2. DEPO-MEDROL [Suspect]
     Active Substance: METHYLPREDNISOLONE ACETATE
     Indication: BACK PAIN
     Dosage: 1 DF, UNK
     Dates: start: 20140712, end: 20140712

REACTIONS (4)
  - Abortion [Unknown]
  - Pregnancy [None]
  - Exposure during pregnancy [None]
  - Blighted ovum [None]

NARRATIVE: CASE EVENT DATE: 201407
